FAERS Safety Report 15457732 (Version 1)
Quarter: 2018Q4

REPORT INFORMATION
  Report Type: Spontaneous
  Country: UA (occurrence: UA)
  Receive Date: 20181003
  Receipt Date: 20181003
  Transmission Date: 20190204
  Serious: Yes (Other)
  Sender: FDA-Public Use
  Company Number: UA-TEVA-2018-UA-960076

PATIENT
  Age: 51 Year
  Sex: Male

DRUGS (1)
  1. ROSART (LOSARTAN POTASSIUM) [Suspect]
     Active Substance: LOSARTAN POTASSIUM
     Route: 065

REACTIONS (5)
  - Liver function test increased [Unknown]
  - Alanine aminotransferase increased [Unknown]
  - Hepatotoxicity [Unknown]
  - Blood triglycerides increased [Unknown]
  - Aspartate aminotransferase increased [Unknown]
